FAERS Safety Report 16027893 (Version 1)
Quarter: 2019Q1

REPORT INFORMATION
  Report Type: Spontaneous
  Country: US (occurrence: US)
  Receive Date: 20190304
  Receipt Date: 20190304
  Transmission Date: 20190418
  Serious: No
  Sender: FDA-Public Use
  Company Number: US-IMPAX LABORATORIES, LLC-2018-IPXL-01073

PATIENT
  Sex: Female
  Weight: 68 kg

DRUGS (5)
  1. RYTARY [Suspect]
     Active Substance: CARBIDOPA\LEVODOPA
     Dosage: 61.25/245 MG, TWO CAPSULES, EVERY SIX HOURS, THREE TIMES PER DAY
     Route: 048
     Dates: start: 201803
  2. BISOPROLOL [Concomitant]
     Active Substance: BISOPROLOL
     Indication: HYPERTENSION
     Dosage: UNK
     Route: 048
  3. RYTARY [Suspect]
     Active Substance: CARBIDOPA\LEVODOPA
     Indication: PARKINSON^S DISEASE
     Dosage: 61.25/245 MG, 6 PER DAY AND 23.75/95 MG 1 PER DAY
     Route: 048
     Dates: start: 201802, end: 2018
  4. RYTARY [Suspect]
     Active Substance: CARBIDOPA\LEVODOPA
     Dosage: 61.25/245 MG, 6 PER DAY
     Route: 048
     Dates: start: 2018, end: 2018
  5. RYTARY [Suspect]
     Active Substance: CARBIDOPA\LEVODOPA
     Dosage: 61.25/245 MG AND 48.75/195 MG, 1 CAP EACH IN MRNG; NEXT DOSE 2 CAPS OF 61.25/245MG; LAST 61.25/245MG
     Route: 048
     Dates: start: 2018, end: 2018

REACTIONS (8)
  - Blood pressure fluctuation [Recovered/Resolved]
  - Insomnia [Unknown]
  - Somnolence [Recovered/Resolved]
  - Nasopharyngitis [Recovering/Resolving]
  - Dysphonia [Not Recovered/Not Resolved]
  - Drug interaction [Recovered/Resolved]
  - Malaise [Not Recovered/Not Resolved]
  - Expired product administered [Unknown]

NARRATIVE: CASE EVENT DATE: 2018
